FAERS Safety Report 5356064-4 (Version None)
Quarter: 2007Q2

REPORT INFORMATION
  Report Type: 
  Country: None (occurrence: None)
  Receive Date: 20070613
  Receipt Date: 20070608
  Transmission Date: 20071010
  Serious: Yes (Other)
  Sender: FDA-Public Use
  Company Number: US-GENENTECH-218608

PATIENT
  Sex: Female
  Weight: 75 kg

DRUGS (9)
  1. OMALIZUMAB [Suspect]
     Indication: ASTHMA
     Dosage: UNK, UNK
     Route: 058
     Dates: end: 20050818
  2. BENADRYL [Concomitant]
     Indication: DRUG USE FOR UNKNOWN INDICATION
     Dosage: 12.5 MG, PRN
  3. PULMICORT [Concomitant]
     Indication: DRUG USE FOR UNKNOWN INDICATION
     Dosage: .5 MG, QHS
  4. ALBUTEROL [Concomitant]
     Indication: DRUG USE FOR UNKNOWN INDICATION
     Dosage: 2 PUFF, PRN
  5. PROTOPIC [Concomitant]
     Indication: DRUG USE FOR UNKNOWN INDICATION
     Dosage: UNK, PRN
  6. TEMAZEPAM [Concomitant]
     Indication: DRUG USE FOR UNKNOWN INDICATION
     Dosage: UNK, PRN
  7. ANTIHYPERTENSIVE [Concomitant]
     Indication: DRUG USE FOR UNKNOWN INDICATION
  8. PREMARIN [Concomitant]
     Indication: DRUG USE FOR UNKNOWN INDICATION
  9. QUININE SULFATE [Concomitant]
     Indication: DRUG USE FOR UNKNOWN INDICATION
     Dosage: UNK, QHS

REACTIONS (4)
  - ANAPHYLACTIC REACTION [None]
  - CHEST DISCOMFORT [None]
  - DYSPNOEA [None]
  - PHARYNGEAL OEDEMA [None]
